FAERS Safety Report 21436554 (Version 1)
Quarter: 2022Q4

REPORT INFORMATION
  Report Type: Spontaneous
  Country: MX (occurrence: MX)
  Receive Date: 20221010
  Receipt Date: 20221010
  Transmission Date: 20230112
  Serious: Yes (Hospitalization)
  Sender: FDA-Public Use
  Company Number: MX-BIOMARINAP-MX-2022-145975

PATIENT

DRUGS (1)
  1. NAGLAZYME [Suspect]
     Active Substance: GALSULFASE
     Indication: Mucopolysaccharidosis VI
     Dosage: UNK, QW
     Route: 042
     Dates: start: 20120101

REACTIONS (3)
  - Bronchitis [Unknown]
  - Pigmentation disorder [Not Recovered/Not Resolved]
  - Skin abrasion [Unknown]

NARRATIVE: CASE EVENT DATE: 20210101
